FAERS Safety Report 23778451 (Version 1)
Quarter: 2024Q2

REPORT INFORMATION
  Report Type: Spontaneous
  Country: US (occurrence: None)
  Receive Date: 20240423
  Receipt Date: 20240423
  Transmission Date: 20240716
  Serious: Yes (Life-Threatening)
  Sender: FDA-Public Use
  Company Number: None

PATIENT
  Age: 48 Year
  Sex: Male

DRUGS (1)
  1. LISINOPRIL [Suspect]
     Active Substance: LISINOPRIL
     Indication: Blood pressure measurement
     Dosage: FREQUENCY : DAILY;?
     Route: 048
     Dates: start: 20191205, end: 20230414

REACTIONS (3)
  - Drug hypersensitivity [None]
  - Angioedema [None]
  - Musculoskeletal chest pain [None]

NARRATIVE: CASE EVENT DATE: 20230414
